FAERS Safety Report 15065256 (Version 4)
Quarter: 2018Q3

REPORT INFORMATION
  Report Type: Report from Study
  Country: US (occurrence: US)
  Receive Date: 20180626
  Receipt Date: 20180904
  Transmission Date: 20181010
  Serious: Yes (Hospitalization)
  Sender: FDA-Public Use
  Company Number: US-GILEAD-2018-0345749

PATIENT
  Age: 39 Year
  Sex: Female

DRUGS (3)
  1. AMBRISENTAN [Suspect]
     Active Substance: AMBRISENTAN
     Indication: PRODUCT USED FOR UNKNOWN INDICATION
     Dosage: 10 MG, QD
     Route: 065
     Dates: start: 20180430
  2. ADEMPAS [Concomitant]
     Active Substance: RIOCIGUAT
     Dosage: UNK
     Dates: start: 201807
  3. VELETRI [Concomitant]
     Active Substance: EPOPROSTENOL

REACTIONS (6)
  - Device dislocation [Unknown]
  - Dyspnoea [Unknown]
  - Ill-defined disorder [Unknown]
  - Fatigue [Unknown]
  - Pain in extremity [Not Recovered/Not Resolved]
  - Infection [Recovered/Resolved]
